FAERS Safety Report 24445766 (Version 7)
Quarter: 2025Q1

REPORT INFORMATION
  Report Type: Spontaneous
  Country: US (occurrence: US)
  Receive Date: 20241016
  Receipt Date: 20250320
  Transmission Date: 20250408
  Serious: No
  Sender: PFIZER
  Company Number: US-PFIZER INC-202400276078

PATIENT
  Age: 77 Year
  Sex: Female
  Weight: 64.863 kg

DRUGS (1)
  1. ESTRING [Suspect]
     Active Substance: ESTRADIOL
     Indication: Vulvovaginal dryness
     Dosage: 1 RING VAGINALLY EVERY 3 MONTHS (7.5 MCG/24 HOURS)
     Route: 067
     Dates: start: 2023, end: 202409

REACTIONS (4)
  - Vulvovaginal discomfort [Recovered/Resolved with Sequelae]
  - Device physical property issue [Unknown]
  - Poor quality device used [Unknown]
  - Device defective [Unknown]

NARRATIVE: CASE EVENT DATE: 20240901
